FAERS Safety Report 18059948 (Version 1)
Quarter: 2020Q3

REPORT INFORMATION
  Report Type: Spontaneous
  Country: DE (occurrence: DE)
  Receive Date: 20200723
  Receipt Date: 20200723
  Transmission Date: 20201103
  Serious: Yes (Hospitalization)
  Sender: FDA-Public Use
  Company Number: DE-DRREDDYS-GER/GER/18/0103086

PATIENT
  Age: 42 Year
  Sex: Female
  Weight: 51 kg

DRUGS (3)
  1. HERCEPTIN [Suspect]
     Active Substance: TRASTUZUMAB
     Indication: HER2 POSITIVE BREAST CANCER
     Dosage: DAILY DOSE: 6 MG/KG MILLIGRAM(S)/KILOGRAM EVERY 3 WEEKS
     Dates: start: 20160725
  2. DOCETAXEL. [Suspect]
     Active Substance: DOCETAXEL
     Indication: HER2 POSITIVE BREAST CANCER
     Dosage: DAILY DOSE: 75 MG/M2 MILLIGRAM(S)/SQ. METER EVERY 3 WEEKS
     Route: 042
     Dates: start: 20160725
  3. PERJETA [Suspect]
     Active Substance: PERTUZUMAB
     Indication: HER2 POSITIVE BREAST CANCER
     Dosage: DAILY DOSE: 420 MG MILLGRAM(S) EVERY 3 WEEKS
     Route: 042
     Dates: start: 20160725

REACTIONS (13)
  - Leukopenia [Recovered/Resolved]
  - Dysphagia [Not Recovered/Not Resolved]
  - Decreased appetite [Recovered/Resolved]
  - Diarrhoea [Recovered/Resolved]
  - Spinal pain [Recovered/Resolved]
  - Respiratory disorder [Recovered/Resolved]
  - Pain in extremity [Recovered/Resolved]
  - Muscular weakness [Recovered/Resolved]
  - Muscle spasms [Recovered/Resolved]
  - Polyneuropathy [Recovered/Resolved]
  - Bone pain [Recovered/Resolved]
  - Nausea [Recovered/Resolved]
  - Fatigue [Recovered/Resolved]

NARRATIVE: CASE EVENT DATE: 20160725
